FAERS Safety Report 20962633 (Version 1)
Quarter: 2022Q2

REPORT INFORMATION
  Report Type: Report from Study
  Country: GB (occurrence: GB)
  Receive Date: 20220615
  Receipt Date: 20220615
  Transmission Date: 20220721
  Serious: Yes (Other)
  Sender: FDA-Public Use
  Company Number: GB-ROCHE-3028296

PATIENT
  Age: 78 Year
  Sex: Male
  Weight: 70.4 kg

DRUGS (12)
  1. CARBOPLATIN [Suspect]
     Active Substance: CARBOPLATIN
     Indication: Non-small cell lung cancer metastatic
     Dosage: UNIT DOSE: 700MG
     Route: 065
     Dates: start: 20211013
  2. PACLITAXEL [Suspect]
     Active Substance: PACLITAXEL
     Indication: Non-small cell lung cancer metastatic
     Dosage: UNIT DOSE: 378 MG
     Route: 065
     Dates: start: 20211012
  3. ATEZOLIZUMAB [Suspect]
     Active Substance: ATEZOLIZUMAB
     Indication: Non-small cell lung cancer metastatic
     Dosage: UNIT DOSE: 1200MG
     Route: 041
     Dates: start: 20211012
  4. BEVACIZUMAB [Suspect]
     Active Substance: BEVACIZUMAB
     Indication: Non-small cell lung cancer metastatic
     Dosage: UNIT DOSE: 1000MG
     Route: 065
     Dates: start: 20211012
  5. CHLORPHENIRAMINE MALEATE [Concomitant]
     Active Substance: CHLORPHENIRAMINE MALEATE
     Dosage: UNIT DOSE: 10MG, DURATION: 1 DAYS
     Route: 065
     Dates: start: 20211012, end: 20211012
  6. DEXAMETHASONE [Concomitant]
     Active Substance: DEXAMETHASONE
     Dosage: UNIT DOSE: 20MG, DURATION: 1 DAYS
     Route: 065
     Dates: start: 20211012, end: 20211012
  7. TRAMADOL HYDROCHLORIDE [Concomitant]
     Active Substance: TRAMADOL HYDROCHLORIDE
     Dosage: PROLONGED RELEASE, FREQUENCY: ONCE A DAY
     Route: 065
  8. NIZATIDINE [Concomitant]
     Active Substance: NIZATIDINE
     Dosage: UNIT DOSE: 300MG, DURATION: 1 DAYS
     Route: 065
     Dates: start: 20211012, end: 20211012
  9. ONDANSETRON [Concomitant]
     Active Substance: ONDANSETRON
     Dosage: UNIT DOSE: 8 MG, DURATION: 1 DAYS
     Route: 065
     Dates: start: 20211111, end: 20211111
  10. ONDANSETRON [Concomitant]
     Active Substance: ONDANSETRON
     Dosage: UNIT DOSE: 8MG, DURATION: 1 DAYS
     Route: 065
     Dates: start: 20211012, end: 20211012
  11. ACETAMINOPHEN [Concomitant]
     Active Substance: ACETAMINOPHEN
     Indication: Analgesic therapy
     Dosage: FREQUENCY: ONCE AS REQUIRED
     Route: 065
  12. SILDENAFIL [Concomitant]
     Active Substance: SILDENAFIL
     Dosage: FREQUENCY: ONCE AS REQUIRED
     Route: 065
     Dates: start: 19990209

REACTIONS (2)
  - Acute kidney injury [Recovered/Resolved]
  - Hypomagnesaemia [Recovered/Resolved]

NARRATIVE: CASE EVENT DATE: 20211101
